FAERS Safety Report 7258408-5 (Version None)
Quarter: 2011Q1

REPORT INFORMATION
  Report Type: 
  Country: None (occurrence: None)
  Receive Date: 20110129
  Receipt Date: 20100621
  Transmission Date: 20110831
  Serious: No
  Sender: FDA-Public Use
  Company Number: US-ABBOTT-10P-163-0652659-00

PATIENT
  Age: 34 Year
  Sex: Male

DRUGS (4)
  1. CODEINE #4 [Concomitant]
     Indication: PAIN
     Dosage: 1-2 TABLETS EVERY 6 HOURS AS NEEDED
     Route: 048
  2. ANDROGEL [Concomitant]
     Indication: PRODUCT USED FOR UNKNOWN INDICATION
     Dosage: 1 PACKET OF 5 GRAMS APPLIED TO ABDOMEN
  3. HUMIRA [Suspect]
     Indication: PSORIATIC ARTHROPATHY
     Route: 058
     Dates: start: 20100503
  4. FIORACET [Concomitant]
     Indication: MIGRAINE
     Route: 048

REACTIONS (9)
  - HEADACHE [None]
  - NASAL DRYNESS [None]
  - NASAL INFLAMMATION [None]
  - FATIGUE [None]
  - AGITATION [None]
  - SWELLING FACE [None]
  - DISCOMFORT [None]
  - MUSCLE FATIGUE [None]
  - SENSORY DISTURBANCE [None]
